FAERS Safety Report 4380302-8 (Version None)
Quarter: 2004Q2

REPORT INFORMATION
  Report Type: 
  Country: None (occurrence: None)
  Receive Date: 20040616
  Receipt Date: 20040616
  Transmission Date: 20050107
  Serious: Yes (Hospitalization)
  Sender: FDA-Public Use
  Company Number: None

PATIENT
  Age: 45 Year
  Sex: Female
  Weight: 72.5755 kg

DRUGS (2)
  1. NORFLEX [Suspect]
     Indication: MIGRAINE
     Dosage: 30 MG ONE TIME INTRAMUSCULAR
     Route: 030
     Dates: start: 20040424, end: 20040424
  2. NORFLEX [Suspect]
     Indication: MUSCLE SPASMS
     Dosage: 30 MG ONE TIME INTRAMUSCULAR
     Route: 030
     Dates: start: 20040424, end: 20040424

REACTIONS (6)
  - ANXIETY [None]
  - ASTHENIA [None]
  - DRUG EFFECT PROLONGED [None]
  - HYPERHIDROSIS [None]
  - TACHYCARDIA [None]
  - THROAT TIGHTNESS [None]
